FAERS Safety Report 5415724-7 (Version None)
Quarter: 2007Q3

REPORT INFORMATION
  Report Type: 
  Country: None (occurrence: None)
  Receive Date: 20070815
  Receipt Date: 20070803
  Transmission Date: 20080115
  Serious: Yes (Hospitalization)
  Sender: FDA-Public Use
  Company Number: JP-PFIZER INC-2007062003

PATIENT
  Age: 38 Year
  Sex: Female

DRUGS (1)
  1. SOLU-MEDROL [Suspect]
     Indication: MULTIPLE SCLEROSIS
     Dosage: DAILY DOSE:1000MG
     Route: 042

REACTIONS (3)
  - ENTERITIS INFECTIOUS [None]
  - INSOMNIA [None]
  - IRRITABLE BOWEL SYNDROME [None]
